FAERS Safety Report 6382310-4 (Version None)
Quarter: 2009Q3

REPORT INFORMATION
  Report Type: 
  Country: None (occurrence: None)
  Receive Date: 20090925
  Receipt Date: 20090914
  Transmission Date: 20100115
  Serious: No
  Sender: FDA-Public Use
  Company Number: 379799

PATIENT
  Sex: Male
  Weight: 2.1 kg

DRUGS (2)
  1. DEXTROSE 10% [Suspect]
     Indication: DRUG USE FOR UNKNOWN INDICATION
     Dosage: INTRAVENOUS
     Route: 042
     Dates: start: 20090912, end: 20090912
  2. POTASSIUM ACETATE [Suspect]
     Indication: DRUG USE FOR UNKNOWN INDICATION
     Dosage: INTRAVENOUS
     Route: 042
     Dates: start: 20090912, end: 20090912

REACTIONS (4)
  - BLOOD GLUCOSE INCREASED [None]
  - DRUG ADMINISTRATION ERROR [None]
  - FLUID OVERLOAD [None]
  - HYPOTENSION [None]
